FAERS Safety Report 8408063-3 (Version None)
Quarter: 2012Q2

REPORT INFORMATION
  Report Type: 
  Country: None (occurrence: None)
  Receive Date: 20120604
  Receipt Date: 20120522
  Transmission Date: 20120825
  Serious: Yes (Hospitalization)
  Sender: FDA-Public Use
  Company Number: US-MERCK-1003USA01349

PATIENT
  Age: 54 Year
  Sex: Female
  Weight: 81 kg

DRUGS (9)
  1. FOSAMAX [Suspect]
     Indication: OSTEOPOROSIS
     Route: 048
     Dates: start: 19980401, end: 20090101
  2. FOSAMAX [Suspect]
     Indication: OSTEOPENIA
     Route: 048
     Dates: start: 19980401, end: 20090101
  3. FOSAMAX PLUS D [Suspect]
     Route: 048
     Dates: start: 20080501, end: 20090101
  4. HYDROCHLOROTHIAZIDE [Concomitant]
     Indication: HYPERTENSION
     Route: 065
     Dates: start: 19970301
  5. FOSAMAX PLUS D [Suspect]
     Indication: OSTEOPENIA
     Route: 048
     Dates: start: 19981001, end: 20080101
  6. VITAMINS (UNSPECIFIED) [Concomitant]
     Route: 065
  7. ATENOLOL [Concomitant]
     Indication: HYPERTENSION
     Route: 065
     Dates: start: 19970301
  8. FOSAMAX PLUS D [Suspect]
     Indication: OSTEOPOROSIS
     Route: 048
     Dates: start: 19981001, end: 20080101
  9. FOSAMAX PLUS D [Suspect]
     Route: 048
     Dates: start: 20080501, end: 20090101

REACTIONS (16)
  - HYPERLIPIDAEMIA [None]
  - FEMUR FRACTURE [None]
  - IMPAIRED HEALING [None]
  - CONSTIPATION [None]
  - ARTHRALGIA [None]
  - OVARIAN CYST [None]
  - PREMENSTRUAL SYNDROME [None]
  - OLIGOMENORRHOEA [None]
  - DRUG HYPERSENSITIVITY [None]
  - PELVIC FLUID COLLECTION [None]
  - COUGH [None]
  - RHINORRHOEA [None]
  - ARTHROPATHY [None]
  - INCONTINENCE [None]
  - FALL [None]
  - LACERATION [None]
